FAERS Safety Report 24224700 (Version 1)
Quarter: 2024Q3

REPORT INFORMATION
  Report Type: Spontaneous
  Country: JP (occurrence: JP)
  Receive Date: 20240819
  Receipt Date: 20240819
  Transmission Date: 20241016
  Serious: Yes (Hospitalization, Other)
  Sender: BRISTOL MYERS SQUIBB
  Company Number: JP-BRISTOL-MYERS SQUIBB COMPANY-2024-127443

PATIENT
  Age: 72 Year
  Sex: Male

DRUGS (1)
  1. NIVOLUMAB [Suspect]
     Active Substance: NIVOLUMAB
     Indication: Metastatic squamous cell carcinoma

REACTIONS (4)
  - Gastric ulcer [Unknown]
  - Immune-mediated lung disease [Unknown]
  - Immune-mediated cholangitis [Unknown]
  - Drug-induced liver injury [Unknown]
